FAERS Safety Report 17648237 (Version 1)
Quarter: 2020Q2

REPORT INFORMATION
  Report Type: Report from Study
  Country: TW (occurrence: TW)
  Receive Date: 20200409
  Receipt Date: 20200409
  Transmission Date: 20200713
  Serious: Yes (Other)
  Sender: FDA-Public Use
  Company Number: TW-ROCHE-2544063

PATIENT
  Age: 71 Year
  Sex: Female
  Weight: 55 kg

DRUGS (27)
  1. DENOSUMAB [Concomitant]
     Active Substance: DENOSUMAB
     Route: 058
     Dates: start: 20200114, end: 20200114
  2. CELECOXIB. [Concomitant]
     Active Substance: CELECOXIB
     Route: 048
     Dates: start: 20190425, end: 20190502
  3. MOSAPRIDE [Concomitant]
     Active Substance: MOSAPRIDE
     Route: 048
     Dates: start: 20190425, end: 20190502
  4. TARCEVA [Suspect]
     Active Substance: ERLOTINIB HYDROCHLORIDE
     Indication: LUNG NEOPLASM MALIGNANT
     Route: 048
     Dates: start: 20190425, end: 20191007
  5. DENOSUMAB [Concomitant]
     Active Substance: DENOSUMAB
     Route: 058
     Dates: start: 20190709, end: 20190709
  6. LORAZEPAM. [Concomitant]
     Active Substance: LORAZEPAM
     Route: 048
     Dates: start: 20190425, end: 20190502
  7. AVASTIN [Suspect]
     Active Substance: BEVACIZUMAB
     Route: 041
     Dates: start: 20191107, end: 20191107
  8. DEXTROMETHORPHAN [Concomitant]
     Active Substance: DEXTROMETHORPHAN
     Route: 048
     Dates: start: 20190425, end: 20190502
  9. TARCEVA [Suspect]
     Active Substance: ERLOTINIB HYDROCHLORIDE
     Route: 048
     Dates: start: 20191008, end: 20191127
  10. TARCEVA [Suspect]
     Active Substance: ERLOTINIB HYDROCHLORIDE
     Route: 048
     Dates: start: 20191128
  11. DENOSUMAB [Concomitant]
     Active Substance: DENOSUMAB
     Route: 058
     Dates: start: 20191107, end: 20191107
  12. FAMOTIDINE. [Concomitant]
     Active Substance: FAMOTIDINE
     Route: 048
     Dates: start: 20190425, end: 20190502
  13. ZOLPIDEM [Concomitant]
     Active Substance: ZOLPIDEM TARTRATE
     Route: 048
     Dates: start: 20190723, end: 20190806
  14. AVASTIN [Suspect]
     Active Substance: BEVACIZUMAB
     Route: 041
     Dates: start: 20191128, end: 20191128
  15. DENOSUMAB [Concomitant]
     Active Substance: DENOSUMAB
     Route: 058
     Dates: start: 20190806, end: 20190806
  16. URESON [HYDROCORTISONE ACETATE;UREA] [Concomitant]
     Route: 061
     Dates: start: 20190723, end: 20190806
  17. AVASTIN [Suspect]
     Active Substance: BEVACIZUMAB
     Indication: LUNG NEOPLASM MALIGNANT
     Route: 041
     Dates: start: 20190425, end: 20190425
  18. AVASTIN [Suspect]
     Active Substance: BEVACIZUMAB
     Route: 041
     Dates: start: 20191219, end: 20191219
  19. DENOSUMAB [Concomitant]
     Active Substance: DENOSUMAB
     Route: 058
     Dates: start: 20190516, end: 20190516
  20. DENOSUMAB [Concomitant]
     Active Substance: DENOSUMAB
     Route: 058
     Dates: start: 20190613, end: 20190613
  21. CO-DIOVAN [Concomitant]
     Active Substance: HYDROCHLOROTHIAZIDE\VALSARTAN
     Route: 048
     Dates: start: 20190723, end: 20190806
  22. CARVEDILOL. [Concomitant]
     Active Substance: CARVEDILOL
     Route: 065
     Dates: start: 20190723, end: 20190806
  23. AVASTIN [Suspect]
     Active Substance: BEVACIZUMAB
     Route: 041
     Dates: start: 20190723, end: 20190723
  24. AVASTIN [Suspect]
     Active Substance: BEVACIZUMAB
     Route: 041
     Dates: start: 20200114, end: 20200114
  25. DENOSUMAB [Concomitant]
     Active Substance: DENOSUMAB
     Route: 058
     Dates: start: 20190420, end: 20190420
  26. DENOSUMAB [Concomitant]
     Active Substance: DENOSUMAB
     Route: 058
     Dates: start: 20190910, end: 20190910
  27. ACTEIN [Concomitant]
     Route: 048
     Dates: start: 20190425, end: 20190502

REACTIONS (17)
  - Proctalgia [Recovering/Resolving]
  - Decreased appetite [Unknown]
  - Eye haemorrhage [Unknown]
  - Diarrhoea [Unknown]
  - Stomatitis [Unknown]
  - Folliculitis [Recovered/Resolved]
  - Back pain [Recovering/Resolving]
  - Herpes virus infection [Unknown]
  - Memory impairment [Unknown]
  - Anaemia [Unknown]
  - Pain in extremity [Unknown]
  - Rash erythematous [Unknown]
  - Haematochezia [Unknown]
  - Epistaxis [Unknown]
  - Cellulitis [Recovered/Resolved]
  - Nail disorder [Recovered/Resolved]
  - Mouth ulceration [Recovered/Resolved]

NARRATIVE: CASE EVENT DATE: 20190723
